FAERS Safety Report 22165697 (Version 1)
Quarter: 2023Q1

REPORT INFORMATION
  Report Type: Spontaneous
  Country: US (occurrence: None)
  Receive Date: 20230331
  Receipt Date: 20230331
  Transmission Date: 20230418
  Serious: Yes (Other)
  Sender: FDA-Public Use
  Company Number: None

PATIENT
  Age: 63 Year
  Sex: Male
  Weight: 64.86 kg

DRUGS (22)
  1. CABOMETYX [Suspect]
     Active Substance: CABOZANTINIB S-MALATE
     Indication: Renal cancer
     Dosage: FREQUENCY : DAILY;?
     Route: 048
     Dates: start: 20220914
  2. LEVOTHYROXINE [Concomitant]
  3. TABHYDROCODONE/ACETAMINOPHEN [Concomitant]
  4. METOPROLOL ER SUCCINATE [Concomitant]
  5. OPDIVO [Concomitant]
     Active Substance: NIVOLUMAB
  6. HYDRALAZINE [Concomitant]
  7. AMLODIPINE BESYLATE [Concomitant]
  8. BUPROPION XL [Concomitant]
  9. CELECOXIB [Concomitant]
  10. CLONIDINE [Concomitant]
     Active Substance: CLONIDINE
  11. DEXAMETHASONE [Concomitant]
  12. ESCITALOPRAM [Concomitant]
  13. FLUDROCORTISONE [Concomitant]
  14. LISINOPRIL [Concomitant]
  15. METFORMIN [Concomitant]
  16. METOCLOPRAMIDE [Concomitant]
  17. MIDODRINE [Concomitant]
  18. ONDANSETRON [Concomitant]
  19. PANTOPRAZOLE [Concomitant]
  20. PROCHLORPERAZINE [Concomitant]
  21. ROPINIROLE [Concomitant]
  22. ROSUVASTATIN [Concomitant]

REACTIONS (5)
  - Decreased appetite [None]
  - Nausea [None]
  - Diarrhoea [None]
  - Dehydration [None]
  - Vomiting [None]

NARRATIVE: CASE EVENT DATE: 20230331
